FAERS Safety Report 18451520 (Version 1)
Quarter: 2020Q4

REPORT INFORMATION
  Report Type: Spontaneous
  Country: US (occurrence: US)
  Receive Date: 20201102
  Receipt Date: 20201102
  Transmission Date: 20210114
  Serious: No
  Sender: FDA-Public Use
  Company Number: US-TEVA-2020-US-1844162

PATIENT
  Age: 67 Year
  Sex: Male

DRUGS (1)
  1. ALBUTEROL SULFATE HFA [Suspect]
     Active Substance: ALBUTEROL SULFATE
     Dosage: USING SINCE 20 YEARS NOW/FORM OF ADMIN: INHALER
     Route: 065

REACTIONS (4)
  - Dyspnoea [Unknown]
  - Product taste abnormal [Unknown]
  - Device malfunction [Unknown]
  - Product residue present [Unknown]

NARRATIVE: CASE EVENT DATE: 2020
